FAERS Safety Report 5279804-1 (Version None)
Quarter: 2007Q1

REPORT INFORMATION
  Report Type: 
  Country: None (occurrence: None)
  Receive Date: 20061212
  Receipt Date: 20040514
  Transmission Date: 20070707
  Serious: Yes (Hospitalization)
  Sender: FDA-Public Use
  Company Number: 2004UW10029

PATIENT
  Age: 12 Year
  Sex: Female
  Weight: 44.9061 kg

DRUGS (2)
  1. RHINOCORT AQUA [Suspect]
     Indication: MULTIPLE ALLERGIES
     Dosage: 2 SPRAY BID IN
     Route: 055
     Dates: start: 20040510
  2. ANTIBIIOTICS [Concomitant]

REACTIONS (1)
  - EPISTAXIS [None]
